FAERS Safety Report 9734894 (Version 1)
Quarter: 2013Q4

REPORT INFORMATION
  Report Type: Spontaneous
  Country: US (occurrence: US)
  Receive Date: 20131206
  Receipt Date: 20131206
  Transmission Date: 20140711
  Serious: No
  Sender: FDA-Public Use
  Company Number: US-ENDO PHARMACEUTICALS INC.-BUTA20110001

PATIENT
  Age: 17 Year
  Sex: Female

DRUGS (2)
  1. BUTALBITAL/ACETAMINOPHEN/CAFFEINE TABLETS [Suspect]
     Indication: MIGRAINE
     Dosage: UNKNOWN
     Route: 048
     Dates: start: 201102
  2. BIRTH CONTROL PILLS [Concomitant]
     Indication: CONTRACEPTION
     Dosage: UNKNOWN
     Route: 065
     Dates: start: 2010

REACTIONS (2)
  - Dysmenorrhoea [Unknown]
  - Menstruation irregular [Unknown]
